FAERS Safety Report 9798702 (Version 2)
Quarter: 2014Q2

REPORT INFORMATION
  Report Type: Spontaneous
  Country: GB (occurrence: None)
  Receive Date: 20131231
  Receipt Date: 20140401
  Transmission Date: 20141212
  Serious: Yes (Hospitalization, Other)
  Sender: FDA-Public Use
  Company Number: AUR-APL-2013-10777

PATIENT
  Age: 27 Year
  Sex: Male

DRUGS (2)
  1. SIMVASTATIN [Suspect]
     Indication: HYPERLIPIDAEMIA
     Route: 048
     Dates: start: 201212, end: 201312
  2. CLOZARIL (CLOZAPINE) [Concomitant]

REACTIONS (5)
  - Muscle twitching [None]
  - Myoclonus [None]
  - Lower limb fracture [None]
  - Treatment noncompliance [None]
  - Fall [None]
